FAERS Safety Report 18155346 (Version 1)
Quarter: 2020Q3

REPORT INFORMATION
  Report Type: Spontaneous
  Country: US (occurrence: US)
  Receive Date: 20200814
  Receipt Date: 20200814
  Transmission Date: 20201103
  Serious: No
  Sender: FDA-Public Use
  Company Number: None

PATIENT
  Age: 77 Year
  Sex: Male
  Weight: 95.2 kg

DRUGS (3)
  1. REMDISEVIR 100MG [Concomitant]
     Dates: start: 20200811, end: 20200811
  2. REMDESIVIR. [Suspect]
     Active Substance: REMDESIVIR
     Indication: COVID-19
     Route: 041
     Dates: start: 20200811, end: 20200812
  3. REMDESIVIR 200MG [Concomitant]
     Active Substance: REMDESIVIR
     Dates: start: 20200812, end: 20200812

REACTIONS (4)
  - Posturing [None]
  - Oxygen saturation decreased [None]
  - Seizure [None]
  - Hypoxia [None]

NARRATIVE: CASE EVENT DATE: 20200812
